FAERS Safety Report 21731425 (Version 3)
Quarter: 2024Q3

REPORT INFORMATION
  Report Type: Spontaneous
  Country: US (occurrence: US)
  Receive Date: 20221215
  Receipt Date: 20240813
  Transmission Date: 20241017
  Serious: No
  Sender: LUPIN
  Company Number: US-LUPIN PHARMACEUTICALS INC.-2022-14263

PATIENT

DRUGS (3)
  1. ALBUTEROL SULFATE [Suspect]
     Active Substance: ALBUTEROL SULFATE
     Indication: Dyspnoea
     Dosage: UNK, 2 PUFFS EVERY 6 HOURS
  2. ALBUTEROL SULFATE [Suspect]
     Active Substance: ALBUTEROL SULFATE
     Indication: Chronic obstructive pulmonary disease
     Dosage: UNK, PRN, 2 PUFFS EVERY 4 HOURS OR AS NEEDED
  3. ALBUTEROL SULFATE [Suspect]
     Active Substance: ALBUTEROL SULFATE
     Indication: Bronchitis

REACTIONS (5)
  - Drug dose omission by device [Unknown]
  - Off label use [Unknown]
  - Device delivery system issue [Unknown]
  - Cough [Unknown]
  - Device deposit issue [Unknown]
